FAERS Safety Report 7945407-0 (Version None)
Quarter: 2011Q4

REPORT INFORMATION
  Report Type: 
  Country: None (occurrence: None)
  Receive Date: 20111129
  Receipt Date: 20111115
  Transmission Date: 20120403
  Serious: Yes (Hospitalization)
  Sender: FDA-Public Use
  Company Number: US-ASTRAZENECA-2011SE04906

PATIENT
  Age: 65 Year
  Sex: Male

DRUGS (2)
  1. TOPROL-XL [Suspect]
     Dosage: UNKNOWN DOSE EVERY MORNING
     Route: 048
  2. NORVASC [Concomitant]
     Dosage: UNKNOWN DOSE AT NIGHT

REACTIONS (1)
  - CORONARY ARTERY BYPASS [None]
